FAERS Safety Report 14703009 (Version 1)
Quarter: 2018Q2

REPORT INFORMATION
  Report Type: Spontaneous
  Country: FR (occurrence: FR)
  Receive Date: 20180402
  Receipt Date: 20180402
  Transmission Date: 20180711
  Serious: Yes (Other)
  Sender: FDA-Public Use
  Company Number: FR-MERCK KGAA-2044876

PATIENT
  Age: 37 Year
  Sex: Female

DRUGS (2)
  1. NOVOTHYROX [Suspect]
     Active Substance: LEVOTHYROXINE SODIUM
     Indication: POST PROCEDURAL HYPOTHYROIDISM
  2. NOVOTHYROX [Suspect]
     Active Substance: LEVOTHYROXINE SODIUM
     Indication: BASEDOW^S DISEASE

REACTIONS (24)
  - Diarrhoea [None]
  - Loss of personal independence in daily activities [None]
  - Negative thoughts [None]
  - Malaise [None]
  - Tachycardia [None]
  - Muscle spasms [None]
  - Asthenia [None]
  - Asocial behaviour [None]
  - Anti-thyroid antibody positive [None]
  - Hyperthyroidism [None]
  - Insomnia [None]
  - Fatigue [None]
  - Weight decreased [None]
  - Nausea [None]
  - Mood altered [None]
  - Loss of libido [None]
  - Arthralgia [None]
  - Irritability [None]
  - Emotional distress [None]
  - Mood swings [None]
  - Thyroglobulin increased [None]
  - Myalgia [None]
  - Alopecia [None]
  - Hypothyroidism [None]

NARRATIVE: CASE EVENT DATE: 201705
